FAERS Safety Report 23925045 (Version 1)
Quarter: 2024Q2

REPORT INFORMATION
  Report Type: Spontaneous
  Country: ZA (occurrence: None)
  Receive Date: 20240531
  Receipt Date: 20240531
  Transmission Date: 20240716
  Serious: Yes (Death)
  Sender: FDA-Public Use
  Company Number: 2024A125088

PATIENT
  Age: 73 Year
  Sex: Male

DRUGS (9)
  1. DAPAGLIFLOZIN PROPANEDIOL [Suspect]
     Active Substance: DAPAGLIFLOZIN PROPANEDIOL
     Route: 048
  2. FLUTICASONE PROPIONATE\SALMETEROL XINAFOATE [Concomitant]
     Active Substance: FLUTICASONE PROPIONATE\SALMETEROL XINAFOATE
  3. GLUCOPHAGE XR [Concomitant]
     Active Substance: METFORMIN HYDROCHLORIDE
  4. BISOPROLOL [Concomitant]
     Active Substance: BISOPROLOL\BISOPROLOL FUMARATE
  5. ZOLPIDEM TARTRATE [Concomitant]
     Active Substance: ZOLPIDEM TARTRATE
  6. ALPRAZOLAM [Concomitant]
     Active Substance: ALPRAZOLAM
  7. AMIODARONE [Concomitant]
     Active Substance: AMIODARONE
  8. ECOTRIN [Concomitant]
     Active Substance: ASPIRIN
  9. SPIRACTIN [Concomitant]

REACTIONS (1)
  - Death [Fatal]

NARRATIVE: CASE EVENT DATE: 20240511
